FAERS Safety Report 24300972 (Version 1)
Quarter: 2024Q3

REPORT INFORMATION
  Report Type: Spontaneous
  Country: CN (occurrence: CN)
  Receive Date: 20240910
  Receipt Date: 20240910
  Transmission Date: 20241016
  Serious: Yes (Hospitalization)
  Sender: NOVARTIS
  Company Number: CN-002147023-NVSC2024CN179401

PATIENT
  Age: 10 Year
  Sex: Female
  Weight: 38 kg

DRUGS (1)
  1. TRILEPTAL [Suspect]
     Active Substance: OXCARBAZEPINE
     Indication: Epilepsy
     Dosage: 0.150 G, BID
     Route: 048
     Dates: start: 20240811, end: 20240828

REACTIONS (6)
  - Drug eruption [Recovered/Resolved]
  - Cough [Recovering/Resolving]
  - Basophil count increased [Recovering/Resolving]
  - C-reactive protein increased [Recovering/Resolving]
  - Lung disorder [Recovering/Resolving]
  - Pyrexia [Recovering/Resolving]

NARRATIVE: CASE EVENT DATE: 20240817
